FAERS Safety Report 20908537 (Version 1)
Quarter: 2022Q2

REPORT INFORMATION
  Report Type: Report from Study
  Country: US (occurrence: US)
  Receive Date: 20220603
  Receipt Date: 20220603
  Transmission Date: 20220721
  Serious: Yes (Hospitalization, Other)
  Sender: FDA-Public Use
  Company Number: US-CELGENE-USA-20210107519

PATIENT
  Age: 65 Year
  Sex: Male
  Weight: 90.72 kg

DRUGS (3)
  1. REVLIMID [Suspect]
     Active Substance: LENALIDOMIDE
     Indication: Plasma cell myeloma
     Dosage: 25 MILLIGRAM
     Route: 048
     Dates: start: 202010
  2. REVLIMID [Suspect]
     Active Substance: LENALIDOMIDE
     Dosage: 25 MILLIGRAM
     Route: 048
     Dates: start: 202104
  3. RAMIPRIL [Concomitant]
     Active Substance: RAMIPRIL
     Indication: Blood pressure measurement
     Dates: start: 2022

REACTIONS (5)
  - COVID-19 [Unknown]
  - Pulmonary thrombosis [Unknown]
  - Insomnia [Unknown]
  - Fatigue [Unknown]
  - Haemorrhage [Unknown]

NARRATIVE: CASE EVENT DATE: 20201201
